FAERS Safety Report 11820747 (Version 3)
Quarter: 2016Q1

REPORT INFORMATION
  Report Type: Spontaneous
  Country: US (occurrence: US)
  Receive Date: 20151210
  Receipt Date: 20160308
  Transmission Date: 20160525
  Serious: No
  Sender: FDA-Public Use
  Company Number: US-JNJFOC-20150121888

PATIENT
  Age: 84 Year
  Sex: Male

DRUGS (4)
  1. ONE A DAY MULTIVITAMIN [Concomitant]
  2. IMBRUVICA [Suspect]
     Active Substance: IBRUTINIB
     Indication: CHRONIC LYMPHOCYTIC LEUKAEMIA
     Route: 048
     Dates: start: 20150422
  3. INEXIUM [Concomitant]
     Active Substance: ESOMEPRAZOLE
     Indication: GASTROOESOPHAGEAL REFLUX DISEASE
  4. LATANOPROST. [Concomitant]
     Active Substance: LATANOPROST
     Indication: GLAUCOMA

REACTIONS (6)
  - Dizziness [Not Recovered/Not Resolved]
  - Arthralgia [Unknown]
  - Incorrect dose administered [Not Recovered/Not Resolved]
  - Gait disturbance [Unknown]
  - Cataract [Unknown]
  - Myalgia [Unknown]

NARRATIVE: CASE EVENT DATE: 201512
